FAERS Safety Report 20157886 (Version 3)
Quarter: 2022Q1

REPORT INFORMATION
  Report Type: Report from Study
  Country: US (occurrence: US)
  Receive Date: 20211207
  Receipt Date: 20220113
  Transmission Date: 20220423
  Serious: Yes (Other)
  Sender: FDA-Public Use
  Company Number: US-REGENERON PHARMACEUTICALS, INC.-2021-110530

PATIENT
  Age: 68 Year
  Sex: Female

DRUGS (9)
  1. CASIRIVIMAB\IMDEVIMAB [Suspect]
     Active Substance: CASIRIVIMAB\IMDEVIMAB
     Indication: COVID-19
     Dosage: 1200 MG, UNK
     Route: 042
     Dates: start: 20211130, end: 20211130
  2. AMLODIPINE [Concomitant]
     Active Substance: AMLODIPINE BESYLATE
     Indication: Hypertension
  3. CARVEDILOL [Concomitant]
     Active Substance: CARVEDILOL
     Indication: Hypertension
  4. ASPIRIN                            /00002701/ [Concomitant]
     Indication: Elderly
     Dosage: 81 MG, UNK
  5. PLAQUENIL                          /00072602/ [Concomitant]
     Indication: Systemic lupus erythematosus
  6. PLAQUENIL                          /00072602/ [Concomitant]
     Indication: Mixed connective tissue disease
  7. VITAMIN D                          /00107901/ [Concomitant]
     Indication: COVID-19
  8. ZINC [Concomitant]
     Active Substance: ZINC
     Indication: COVID-19
  9. VITAMIN C                          /00008001/ [Concomitant]
     Indication: COVID-19

REACTIONS (7)
  - Hypertension [Recovered/Resolved]
  - Erythema [Recovered/Resolved]
  - Dyspnoea [Recovered/Resolved]
  - Tachypnoea [Recovered/Resolved]
  - Palpitations [Recovered/Resolved]
  - Back pain [Recovered/Resolved]
  - Muscle spasms [Recovered/Resolved]

NARRATIVE: CASE EVENT DATE: 20211130
